APPROVED DRUG PRODUCT: COZAAR
Active Ingredient: LOSARTAN POTASSIUM
Strength: 50MG
Dosage Form/Route: TABLET;ORAL
Application: N020386 | Product #002 | TE Code: AB
Applicant: ORGANON LLC A SUB OF ORGANON AND CO
Approved: Apr 14, 1995 | RLD: Yes | RS: No | Type: RX